FAERS Safety Report 15866736 (Version 1)
Quarter: 2019Q1

REPORT INFORMATION
  Report Type: Spontaneous
  Country: US (occurrence: US)
  Receive Date: 20190125
  Receipt Date: 20190125
  Transmission Date: 20190417
  Serious: No
  Sender: FDA-Public Use
  Company Number: US-JNJFOC-20181236177

PATIENT
  Sex: Male
  Weight: 56.25 kg

DRUGS (2)
  1. KETOCONAZOLE. [Suspect]
     Active Substance: KETOCONAZOLE
     Indication: DRY SKIN
     Route: 061
     Dates: start: 2018
  2. KETOCONAZOLE. [Suspect]
     Active Substance: KETOCONAZOLE
     Indication: PRURITUS
     Route: 061
     Dates: start: 2018

REACTIONS (2)
  - Acne [Recovering/Resolving]
  - Thermal burn [Unknown]
